FAERS Safety Report 4920605-9 (Version None)
Quarter: 2006Q1

REPORT INFORMATION
  Report Type: 
  Country: None (occurrence: None)
  Receive Date: 20060217
  Receipt Date: 20060207
  Transmission Date: 20060701
  Serious: Yes (Other)
  Sender: FDA-Public Use
  Company Number: TPA2006A00219

PATIENT
  Age: 63 Year
  Sex: Male

DRUGS (13)
  1. ACTOS [Suspect]
     Indication: DIABETES MELLITUS NON-INSULIN-DEPENDENT
     Dosage: PER ORAL
     Route: 048
     Dates: end: 20060124
  2. BYETTA [Suspect]
     Indication: DIABETES MELLITUS NON-INSULIN-DEPENDENT
     Dosage: 5 MCG, 2 IN 1 D, SUBCUTANEOUS
     Route: 058
     Dates: start: 20051220, end: 20060121
  3. PLAVIX [Concomitant]
  4. HYZAAR [Concomitant]
  5. DYNACIRC [Concomitant]
  6. METFORMIN HCL [Concomitant]
  7. TRICOR [Concomitant]
  8. ASPIRIN [Concomitant]
  9. NISAPAN (NICOTINIC ACID) [Concomitant]
  10. CORGARD [Concomitant]
  11. PRILOSEC [Concomitant]
  12. FISH OIL (FISH OIL) [Concomitant]
  13. CRESTOR [Concomitant]

REACTIONS (10)
  - ANOREXIA [None]
  - ASTHENIA [None]
  - CHEST PAIN [None]
  - CHROMATURIA [None]
  - DIARRHOEA [None]
  - ERUCTATION [None]
  - FLATULENCE [None]
  - HEPATITIS TOXIC [None]
  - NAUSEA [None]
  - WEIGHT DECREASED [None]
